FAERS Safety Report 7768088-8 (Version None)
Quarter: 2011Q3

REPORT INFORMATION
  Report Type: 
  Country: None (occurrence: None)
  Receive Date: 20110922
  Receipt Date: 20110916
  Transmission Date: 20111222
  Serious: Yes (Other)
  Sender: FDA-Public Use
  Company Number: JP-PFIZER INC-2011122446

PATIENT
  Age: 33 Year
  Sex: Female

DRUGS (4)
  1. CELECOXIB [Suspect]
     Dosage: 50 MG, UNK
     Route: 048
  2. CELECOXIB [Suspect]
     Dosage: 100 MG, UNK
     Route: 048
  3. ASPIRIN [Suspect]
     Dosage: 15 MG, UNK
  4. CELECOXIB [Suspect]
     Dosage: 200 MG, UNK
     Route: 048

REACTIONS (4)
  - URTICARIA [None]
  - LOSS OF CONSCIOUSNESS [None]
  - ASTHMA [None]
  - ABDOMINAL PAIN [None]
